FAERS Safety Report 11342236 (Version 1)
Quarter: 2015Q3

REPORT INFORMATION
  Report Type: Spontaneous
  Country: JP (occurrence: JP)
  Receive Date: 20150805
  Receipt Date: 20150805
  Transmission Date: 20151125
  Serious: Yes (Death)
  Sender: FDA-Public Use
  Company Number: JP-MALLINCKRODT-T201503709

PATIENT
  Age: 40 Year
  Sex: Male
  Weight: 55 kg

DRUGS (9)
  1. METHADONE [Suspect]
     Active Substance: METHADONE HYDROCHLORIDE
     Dosage: 25 MG DAILY DOSE
     Route: 048
     Dates: start: 20150630, end: 20150715
  2. CYMBALTA [Concomitant]
     Active Substance: DULOXETINE HYDROCHLORIDE
     Dosage: 20 MG
     Route: 048
     Dates: end: 20150715
  3. METHADONE [Suspect]
     Active Substance: METHADONE HYDROCHLORIDE
     Indication: CANCER PAIN
     Dosage: 5 MG (15 MG DAILY DOSE)
     Route: 048
     Dates: start: 20150616, end: 20150629
  4. MAGMITT [Concomitant]
     Active Substance: MAGNESIUM OXIDE
     Dosage: 1500 MG
     Route: 048
     Dates: end: 20150715
  5. CELECOX [Concomitant]
     Active Substance: CELECOXIB
     Dosage: 400 MG
     Route: 048
     Dates: end: 20150715
  6. NOVAMIN [Concomitant]
     Active Substance: PROCHLORPERAZINE MALEATE
     Dosage: 10 MG
     Route: 048
     Dates: end: 20150715
  7. OXINORM [Concomitant]
     Active Substance: OXYCODONE HYDROCHLORIDE
     Dosage: 10-20 MG, PRN
     Route: 048
     Dates: start: 20150615
  8. TSUDOSAN [Concomitant]
     Dosage: 7.5 G
     Route: 048
     Dates: end: 20150715
  9. AMITIZA [Concomitant]
     Active Substance: LUBIPROSTONE
     Dosage: 48 UG
     Route: 048
     Dates: start: 20150626, end: 20150715

REACTIONS (2)
  - Constipation [Not Recovered/Not Resolved]
  - Pancreatic carcinoma [Fatal]

NARRATIVE: CASE EVENT DATE: 20150626
